FAERS Safety Report 9687656 (Version 2)
Quarter: 2013Q4

REPORT INFORMATION
  Report Type: Spontaneous
  Country: US (occurrence: US)
  Receive Date: 20131114
  Receipt Date: 20131203
  Transmission Date: 20140711
  Serious: No
  Sender: FDA-Public Use
  Company Number: US-PFIZER INC-2013318752

PATIENT
  Age: 46 Year
  Sex: Female
  Weight: 52.61 kg

DRUGS (1)
  1. ELELYSO [Suspect]
     Indication: GAUCHER^S DISEASE
     Dosage: 3200 UNITS EVERY 2 WEEKS
     Route: 042
     Dates: start: 201210, end: 201310

REACTIONS (1)
  - Hiatus hernia [Unknown]
